FAERS Safety Report 10203967 (Version 4)
Quarter: 2014Q4

REPORT INFORMATION
  Report Type: Report from Study
  Country: ES (occurrence: ES)
  Receive Date: 20140529
  Receipt Date: 20141218
  Transmission Date: 20150528
  Serious: Yes (Hospitalization)
  Sender: FDA-Public Use
  Company Number: ES-B.I. PHARMACEUTICALS,INC./RIDGEFIELD-2013-BI-44087BI

PATIENT
  Age: 78 Year
  Sex: Female
  Weight: 45.2 kg

DRUGS (7)
  1. PARACETAMOL [Concomitant]
     Active Substance: ACETAMINOPHEN
     Indication: ABDOMINAL PAIN
     Dosage: 1 G
     Route: 042
     Dates: start: 20131227, end: 20140129
  2. OMEPRAZOL [Concomitant]
     Active Substance: OMEPRAZOLE
     Indication: PROPHYLAXIS
     Dosage: 40 MG
     Route: 048
     Dates: start: 20131227, end: 20140129
  3. BIBW 2992 [Suspect]
     Active Substance: AFATINIB
     Indication: NON-SMALL CELL LUNG CANCER
     Dosage: 40 MG
     Route: 048
     Dates: start: 20131128, end: 20131227
  4. FENTANILO [Concomitant]
     Active Substance: FENTANYL
     Indication: ABDOMINAL PAIN
     Dosage: DOSE AND DAILY DOSE: 12MCG/72H
     Route: 062
     Dates: start: 20131227, end: 20140212
  5. AMOXICILINA SODICA+CLAVULANICO [Concomitant]
     Indication: INFECTION PROPHYLAXIS
     Dosage: DOSE PER APPLICATION AND DAILY DOSE: 36/600MG
     Route: 048
     Dates: start: 20131227, end: 20140107
  6. BEMIPARINA [Concomitant]
     Indication: CARDIOVASCULAR EVENT PROPHYLAXIS
     Dosage: 3500 U
     Route: 058
     Dates: start: 20131227, end: 20140212
  7. BIBW 2992 [Suspect]
     Active Substance: AFATINIB
     Dosage: 30 MG
     Route: 048
     Dates: start: 20140114, end: 20140204

REACTIONS (11)
  - Diabetic metabolic decompensation [Recovered/Resolved]
  - Diarrhoea [Recovered/Resolved]
  - Vomiting [Recovered/Resolved]
  - Pleural effusion [Recovered/Resolved]
  - Constipation [Recovered/Resolved]
  - Respiratory tract infection [Recovered/Resolved]
  - Nausea [Recovered/Resolved]
  - Pleural effusion [Recovered/Resolved]
  - General physical health deterioration [Recovered/Resolved]
  - Renal failure [Recovered/Resolved]
  - Diarrhoea [Recovered/Resolved]

NARRATIVE: CASE EVENT DATE: 20131129
